FAERS Safety Report 7390340-9 (Version None)
Quarter: 2011Q1

REPORT INFORMATION
  Report Type: 
  Country: None (occurrence: None)
  Receive Date: 20110325
  Receipt Date: 20110314
  Transmission Date: 20110831
  Serious: Yes (Other)
  Sender: FDA-Public Use
  Company Number: US-004922

PATIENT
  Sex: Female

DRUGS (1)
  1. TRANEXAMIC ACID [Suspect]
     Dosage: 1300 MG TID; 1300 MG TOTAL

REACTIONS (3)
  - HEADACHE [None]
  - NAUSEA [None]
  - CHEST PAIN [None]
